FAERS Safety Report 19810920 (Version 2)
Quarter: 2022Q2

REPORT INFORMATION
  Report Type: Spontaneous
  Country: US (occurrence: US)
  Receive Date: 20210909
  Receipt Date: 20220519
  Transmission Date: 20220721
  Serious: Yes (Other)
  Sender: FDA-Public Use
  Company Number: US-PURDUE-USA-2021-0283366

PATIENT
  Sex: Male

DRUGS (1)
  1. OXYCONTIN [Suspect]
     Active Substance: OXYCODONE HYDROCHLORIDE
     Indication: Product used for unknown indication
     Dosage: UNKNOWN
     Route: 048

REACTIONS (34)
  - Cardiac disorder [Unknown]
  - Brain neoplasm [Unknown]
  - Erectile dysfunction [Unknown]
  - Syncope [Unknown]
  - Glaucoma [Unknown]
  - Drug abuse [Unknown]
  - Swelling [Unknown]
  - Vision blurred [Unknown]
  - Blood pressure increased [Unknown]
  - Hyperhidrosis [Unknown]
  - Tension [Unknown]
  - Depression [Unknown]
  - Amnesia [Unknown]
  - Contusion [Unknown]
  - Constipation [Unknown]
  - Drug withdrawal syndrome [Unknown]
  - Arthralgia [Unknown]
  - Weight increased [Unknown]
  - Weight decreased [Unknown]
  - Fatigue [Unknown]
  - Pyrexia [Unknown]
  - Asthenia [Unknown]
  - Neck pain [Unknown]
  - Breast mass [Unknown]
  - Limb mass [Unknown]
  - Breast pain [Unknown]
  - Head injury [Unknown]
  - Neck mass [Unknown]
  - Cough [Unknown]
  - Wheezing [Unknown]
  - Bronchitis [Unknown]
  - Diplopia [Unknown]
  - Muscle spasms [Unknown]
  - Hypoacusis [Unknown]
